FAERS Safety Report 9403648 (Version 6)
Quarter: 2013Q3

REPORT INFORMATION
  Report Type: Report from Study
  Country: FR (occurrence: FR)
  Receive Date: 20130717
  Receipt Date: 20130906
  Transmission Date: 20140515
  Serious: Yes (Life-Threatening, Hospitalization)
  Sender: FDA-Public Use
  Company Number: FR-ROCHE-1246435

PATIENT
  Age: 56 Year
  Sex: Male
  Weight: 49 kg

DRUGS (6)
  1. RITUXIMAB [Suspect]
     Indication: DIFFUSE LARGE B-CELL LYMPHOMA
     Dosage: LAST DOSE PRIOR TO EVENT ON 03/JUN/2013
     Route: 065
     Dates: start: 20130603
  2. RITUXIMAB [Suspect]
     Dosage: RECENT DOSE PRIOR TO SAE: 18/JUL/2013
     Route: 065
     Dates: start: 20130603
  3. CYCLOPHOSPHAMIDE [Suspect]
     Indication: B-CELL LYMPHOMA
     Route: 065
     Dates: start: 20130531
  4. DOXORUBICIN [Suspect]
     Indication: B-CELL LYMPHOMA
     Route: 065
     Dates: start: 20130531
  5. VINCRISTINE [Suspect]
     Indication: B-CELL LYMPHOMA
     Route: 065
     Dates: start: 20130531
  6. PREDNISOLONE [Suspect]
     Indication: B-CELL LYMPHOMA
     Route: 065
     Dates: start: 20130531

REACTIONS (6)
  - Superior vena cava syndrome [Recovered/Resolved]
  - Bronchial obstruction [Recovered/Resolved]
  - Face oedema [Recovered/Resolved]
  - Respiratory distress [Recovered/Resolved]
  - Bronchospasm [Recovered/Resolved]
  - Pneumonitis [Recovered/Resolved]
